FAERS Safety Report 25951607 (Version 2)
Quarter: 2025Q4

REPORT INFORMATION
  Report Type: Spontaneous
  Country: US (occurrence: US)
  Receive Date: 20251023
  Receipt Date: 20251024
  Transmission Date: 20260118
  Serious: Yes (Hospitalization, Other)
  Sender: ROCHE
  Company Number: US-ROCHE-10000412975

PATIENT
  Sex: Male

DRUGS (5)
  1. XOLAIR [Suspect]
     Active Substance: OMALIZUMAB
     Indication: Idiopathic urticaria
     Dosage: STRENGTH: 300MG/2ML
     Route: 058
     Dates: start: 202203
  2. XOLAIR [Suspect]
     Active Substance: OMALIZUMAB
  3. RUCONEST [Concomitant]
     Active Substance: CONESTAT ALFA
  4. XIFAXAN [Concomitant]
     Active Substance: RIFAXIMIN
  5. TAKHZYRO [Concomitant]
     Active Substance: LANADELUMAB-FLYO

REACTIONS (6)
  - Foot fracture [Unknown]
  - Chest pain [Unknown]
  - Peripheral nerve transposition [Unknown]
  - Abdominal distension [Not Recovered/Not Resolved]
  - Swelling face [Not Recovered/Not Resolved]
  - Swelling [Not Recovered/Not Resolved]
